FAERS Safety Report 4463225-5 (Version None)
Quarter: 2004Q3

REPORT INFORMATION
  Report Type: 
  Country: None (occurrence: None)
  Receive Date: 20040930
  Receipt Date: 20030128
  Transmission Date: 20050211
  Serious: Yes (Hospitalization)
  Sender: FDA-Public Use
  Company Number: PHHO2003PL01456

PATIENT
  Age: 56 Year
  Sex: Female
  Weight: 64 kg

DRUGS (5)
  1. TEGASEROD VS PLACEBO [Suspect]
     Indication: CONSTIPATION
     Dosage: 6 MG, BID
     Route: 048
     Dates: start: 20020529
  2. LETROX [Concomitant]
  3. XALATAN [Concomitant]
  4. PRESTARIUM [Concomitant]
  5. PENTAERYTHRITOL [Concomitant]

REACTIONS (4)
  - ABDOMINAL PAIN [None]
  - GASTRITIS [None]
  - NAUSEA [None]
  - NEPHROLITHIASIS [None]
